FAERS Safety Report 22173778 (Version 1)
Quarter: 2023Q2

REPORT INFORMATION
  Report Type: Spontaneous
  Country: FR (occurrence: FR)
  Receive Date: 20230404
  Receipt Date: 20230404
  Transmission Date: 20230721
  Serious: Yes (Hospitalization, Other)
  Sender: FDA-Public Use
  Company Number: None

PATIENT
  Age: 77 Year
  Sex: Female
  Weight: 79 kg

DRUGS (3)
  1. LOVENOX [Suspect]
     Active Substance: ENOXAPARIN SODIUM
     Indication: Antiphospholipid syndrome
     Dosage: 4000 IU, QD
     Route: 058
     Dates: start: 20230202, end: 20230202
  2. LOVENOX [Suspect]
     Active Substance: ENOXAPARIN SODIUM
     Indication: Antiphospholipid syndrome
     Dosage: 7000 IU, QOD
     Route: 058
     Dates: start: 20230203, end: 20230206
  3. FLUINDIONE [Suspect]
     Active Substance: FLUINDIONE
     Indication: Antiphospholipid syndrome
     Dosage: 0.5 DF, QD
     Route: 048
     Dates: start: 20230202, end: 20230205

REACTIONS (3)
  - Incision site haematoma [Recovering/Resolving]
  - Subdural haematoma [Recovering/Resolving]
  - Blood loss anaemia [Recovering/Resolving]

NARRATIVE: CASE EVENT DATE: 20230206
